FAERS Safety Report 7642438-5 (Version None)
Quarter: 2011Q3

REPORT INFORMATION
  Report Type: 
  Country: None (occurrence: None)
  Receive Date: 20110728
  Receipt Date: 20110118
  Transmission Date: 20111222
  Serious: No
  Sender: FDA-Public Use
  Company Number: US-MYLANLABS-2011S1001396

PATIENT
  Age: 82 Year
  Sex: Female

DRUGS (3)
  1. STRONTIUM [Concomitant]
     Indication: OSTEOPOROSIS
  2. M.V.I. [Concomitant]
  3. LEVOTHYROXINE SODIUM [Suspect]
     Indication: HYPOTHYROIDISM
     Route: 048
     Dates: start: 20040101

REACTIONS (5)
  - INSOMNIA [None]
  - CHEST DISCOMFORT [None]
  - PALPITATIONS [None]
  - VERTIGO [None]
  - ARRHYTHMIA [None]
